FAERS Safety Report 5097124-5 (Version None)
Quarter: 2006Q3

REPORT INFORMATION
  Report Type: 
  Country: None (occurrence: None)
  Receive Date: 20060828
  Receipt Date: 20060822
  Transmission Date: 20061208
  Serious: Yes (Life-Threatening, Other)
  Sender: FDA-Public Use
  Company Number: HQWYE626624JUN04

PATIENT
  Age: 11 Month
  Sex: Male

DRUGS (2)
  1. BENEFIX [Suspect]
     Indication: FACTOR IX DEFICIENCY
     Dosage: PROPHYLAXIS INTRAVENOUS; SEE IMAGE
     Route: 042
     Dates: start: 20040316, end: 20040618
  2. BENEFIX [Suspect]
     Indication: FACTOR IX DEFICIENCY
     Dosage: PROPHYLAXIS INTRAVENOUS; SEE IMAGE
     Route: 042
     Dates: start: 20050401

REACTIONS (4)
  - ANTI FACTOR IX ANTIBODY POSITIVE [None]
  - DRUG HYPERSENSITIVITY [None]
  - FACTOR IX INHIBITION [None]
  - INFUSION RELATED REACTION [None]
